FAERS Safety Report 8428730-5 (Version None)
Quarter: 2012Q2

REPORT INFORMATION
  Report Type: 
  Country: None (occurrence: None)
  Receive Date: 20120612
  Receipt Date: 20120604
  Transmission Date: 20120825
  Serious: Yes (Hospitalization)
  Sender: FDA-Public Use
  Company Number: US-BAYER-2012-038714

PATIENT
  Age: 42 Year
  Sex: Female

DRUGS (6)
  1. ACETAMINOPHEN [Concomitant]
     Indication: HEADACHE
     Dosage: 500 MG, UNK
     Route: 048
  2. YAZ [Suspect]
     Dosage: UNK
  3. DROSPIRENONE AND ETHINYL ESTRADIOL [Suspect]
     Dosage: UNK
  4. NAPROSYN [Concomitant]
     Dosage: 1000 MG EVERY 4 HOURS
  5. INDOCIN [Concomitant]
     Indication: PLEURISY
  6. YASMIN [Suspect]
     Dosage: UNK

REACTIONS (3)
  - PULMONARY EMBOLISM [None]
  - PAIN [None]
  - INJURY [None]
